FAERS Safety Report 24640390 (Version 2)
Quarter: 2024Q4

REPORT INFORMATION
  Report Type: Spontaneous
  Country: US (occurrence: US)
  Receive Date: 20241120
  Receipt Date: 20241209
  Transmission Date: 20250115
  Serious: Yes (Other)
  Sender: BRISTOL-MYERS SQUIBB COMPANY
  Company Number: US-BRISTOL-MYERS SQUIBB COMPANY-2024-176999

PATIENT
  Age: 71 Year
  Sex: Female

DRUGS (1)
  1. POMALYST [Suspect]
     Active Substance: POMALIDOMIDE
     Indication: Plasma cell myeloma
     Dosage: TAKE 1 CAPSULE BY MOUTH EVERY DAY ON DAYS 1-21 OUT OF A 28 DAY CYCLE
     Route: 048
     Dates: start: 202405

REACTIONS (10)
  - Neuropathy peripheral [Unknown]
  - Foot fracture [Unknown]
  - Arthralgia [Unknown]
  - Diarrhoea [Unknown]
  - Blood potassium decreased [Unknown]
  - Neck pain [Unknown]
  - Cartilage injury [Unknown]
  - Urinary tract infection [Recovered/Resolved]
  - Herpes zoster [Unknown]
  - Paraesthesia [Unknown]
